FAERS Safety Report 4751041-6 (Version None)
Quarter: 2005Q3

REPORT INFORMATION
  Report Type: 
  Country: None (occurrence: None)
  Receive Date: 20050824
  Receipt Date: 20050513
  Transmission Date: 20060218
  Serious: No
  Sender: FDA-Public Use
  Company Number: US-GLAXOSMITHKLINE-A0558530A

PATIENT
  Age: 75 Year
  Sex: Male

DRUGS (8)
  1. EPZICOM [Suspect]
     Indication: HIV INFECTION
     Dosage: 1TAB PER DAY
     Route: 048
  2. SUSTIVA [Suspect]
     Indication: HIV INFECTION
     Route: 065
  3. DIGOXIN [Concomitant]
  4. METOPROLOL [Concomitant]
  5. OMEPRAZOLE [Concomitant]
  6. ACYCLOVIR [Concomitant]
  7. OXAZEPAM [Concomitant]
  8. ALLOPURINOL [Concomitant]

REACTIONS (2)
  - PHARYNGOLARYNGEAL PAIN [None]
  - RASH [None]
